FAERS Safety Report 24228289 (Version 2)
Quarter: 2025Q3

REPORT INFORMATION
  Report Type: Report from Study
  Country: CA (occurrence: CA)
  Receive Date: 20240820
  Receipt Date: 20250910
  Transmission Date: 20251021
  Serious: Yes (Other)
  Sender: SANDOZ
  Company Number: CA-SANDOZ-SDZ2024CA072633

PATIENT
  Sex: Female

DRUGS (2)
  1. ERELZI [Suspect]
     Active Substance: ETANERCEPT-SZZS
     Indication: Rheumatoid arthritis
     Dosage: 50 MG, QW
     Route: 058
     Dates: start: 20220421
  2. ERELZI [Suspect]
     Active Substance: ETANERCEPT-SZZS
     Route: 065

REACTIONS (2)
  - Elbow operation [Unknown]
  - General physical health deterioration [Not Recovered/Not Resolved]
